FAERS Safety Report 15933094 (Version 2)
Quarter: 2019Q2

REPORT INFORMATION
  Report Type: Spontaneous
  Country: US (occurrence: US)
  Receive Date: 20190207
  Receipt Date: 20190516
  Transmission Date: 20190711
  Serious: No
  Sender: FDA-Public Use
  Company Number: US-KYOWAKIRIN-2018BKK011947

PATIENT

DRUGS (6)
  1. VITAMIN D                          /07503901/ [Suspect]
     Active Substance: VITAMIN D NOS
     Indication: PRODUCT USED FOR UNKNOWN INDICATION
     Dosage: 2000 IU
     Route: 065
     Dates: start: 20181022, end: 2018
  2. CRYSVITA [Suspect]
     Active Substance: BUROSUMAB-TWZA
     Dosage: 40 MG, EVERY 2 WEEKS
     Route: 058
     Dates: start: 20180622, end: 2018
  3. CRYSVITA [Suspect]
     Active Substance: BUROSUMAB-TWZA
     Dosage: 30 MG (0.8 MG/KG), EVERY 2 WEEKS
     Route: 058
     Dates: start: 201805, end: 2018
  4. CRYSVITA [Suspect]
     Active Substance: BUROSUMAB-TWZA
     Dosage: 60 MG, EVERY 2 WEEKS
     Route: 058
     Dates: start: 20180816, end: 2018
  5. VITAMIN D                          /07503901/ [Suspect]
     Active Substance: VITAMIN D NOS
     Dosage: 800 IU, DAILY
     Route: 065
     Dates: start: 2018
  6. CRYSVITA [Suspect]
     Active Substance: BUROSUMAB-TWZA
     Indication: HEREDITARY HYPOPHOSPHATAEMIC RICKETS
     Dosage: 80 MG AT 2.0MG/KG, EVERY 2 WEEKS
     Route: 058
     Dates: start: 20180928

REACTIONS (2)
  - Blood phosphorus decreased [Not Recovered/Not Resolved]
  - Contraindicated product administered [Not Recovered/Not Resolved]

NARRATIVE: CASE EVENT DATE: 2018
